FAERS Safety Report 24031418 (Version 1)
Quarter: 2024Q2

REPORT INFORMATION
  Report Type: Spontaneous
  Country: US (occurrence: US)
  Receive Date: 20240629
  Receipt Date: 20240629
  Transmission Date: 20240716
  Serious: Yes (Life-Threatening, Hospitalization, Other)
  Sender: FDA-Public Use
  Company Number: US-MLMSERVICE-20240410-PI021005-00034-1

PATIENT

DRUGS (16)
  1. METOPROLOL [Suspect]
     Active Substance: METOPROLOL
     Indication: Atrial flutter
     Dosage: 5 MG, UNK
     Route: 042
  2. METOPROLOL [Suspect]
     Active Substance: METOPROLOL
     Indication: Atrial flutter
     Dosage: 5 MILLIGRAM, QID
     Route: 065
  3. LASIX [Suspect]
     Active Substance: FUROSEMIDE
     Indication: Diuretic therapy
     Dosage: 40 MILLIGRAM, QD
     Route: 065
  4. LASIX [Suspect]
     Active Substance: FUROSEMIDE
     Dosage: 40 MILLIGRAM, BID
     Route: 065
  5. AMIODARONE [Suspect]
     Active Substance: AMIODARONE
     Indication: Atrial flutter
     Dosage: 1 MILLIGRAM, 1 MIN
     Route: 065
  6. AMIODARONE [Suspect]
     Active Substance: AMIODARONE
     Indication: Atrioventricular block
     Dosage: 150 MILLIGRAM, UNK
     Route: 040
  7. DIGOXIN [Suspect]
     Active Substance: DIGOXIN
     Indication: Atrial flutter
     Dosage: 2 DOSAGE FORM (TWO DOSES OF DIGOXIN 0.25 MG)
     Route: 065
  8. DIGOXIN [Suspect]
     Active Substance: DIGOXIN
     Indication: Atrial flutter
     Dosage: 1 DOSAGE FORM (LOADING DOSE)
     Route: 065
  9. CARVEDILOL [Suspect]
     Active Substance: CARVEDILOL
     Indication: Product used for unknown indication
     Dosage: 12.5 MILLIGRAM, BID (12 HOURLY)
     Route: 065
  10. PLAVIX [Concomitant]
     Active Substance: CLOPIDOGREL BISULFATE
     Indication: Product used for unknown indication
     Dosage: 75MG, RESUMED, UNK
     Route: 065
  11. PLAVIX [Concomitant]
     Active Substance: CLOPIDOGREL BISULFATE
     Dosage: 75 MG, UNK
     Route: 065
  12. APIXABAN [Concomitant]
     Active Substance: APIXABAN
     Indication: Product used for unknown indication
     Dosage: 5 MILLIGRAM, BID (TWICE DAILY)
     Route: 065
  13. APIXABAN [Concomitant]
     Active Substance: APIXABAN
     Dosage: 5 MILLIGRAM, BID (TWICE DAILY RESUMED)
     Route: 065
  14. OXYGEN [Concomitant]
     Active Substance: OXYGEN
     Indication: Oxygen therapy
     Dosage: 2 LITER, UNK
     Route: 065
  15. ATORVASTATIN [Concomitant]
     Active Substance: ATORVASTATIN
     Indication: Product used for unknown indication
     Dosage: 80 MILLIGRAM, UNK
     Route: 065
  16. ATORVASTATIN [Concomitant]
     Active Substance: ATORVASTATIN
     Dosage: 40 MILLIGRAM, UNK
     Route: 065

REACTIONS (3)
  - Electrocardiogram QT prolonged [Recovering/Resolving]
  - Torsade de pointes [Recovered/Resolved]
  - Sinus bradycardia [Unknown]
